FAERS Safety Report 7807993-0 (Version None)
Quarter: 2011Q4

REPORT INFORMATION
  Report Type: 
  Country: None (occurrence: None)
  Receive Date: 20111011
  Receipt Date: 20111011
  Transmission Date: 20120403
  Serious: Yes (Other)
  Sender: FDA-Public Use
  Company Number: None

PATIENT
  Age: 49 Year
  Sex: Female
  Weight: 74.842 kg

DRUGS (1)
  1. SUBOXONE [Suspect]
     Indication: PAIN
     Dosage: ONE HALF FILM DIVIDED DOSES
     Route: 060
     Dates: start: 20110616, end: 20110622

REACTIONS (6)
  - PHARYNGEAL OEDEMA [None]
  - SWOLLEN TONGUE [None]
  - TONGUE DISORDER [None]
  - SPEECH DISORDER [None]
  - GLOSSODYNIA [None]
  - ORAL MUCOSAL EXFOLIATION [None]
